FAERS Safety Report 19955115 (Version 1)
Quarter: 2021Q4

REPORT INFORMATION
  Report Type: Spontaneous
  Country: PL (occurrence: PL)
  Receive Date: 20211014
  Receipt Date: 20211014
  Transmission Date: 20220303
  Serious: Yes (Hospitalization, Other)
  Sender: FDA-Public Use
  Company Number: None

PATIENT
  Age: 74 Year
  Sex: Male
  Weight: 67 kg

DRUGS (2)
  1. AMLODIPINE BESYLATE [Suspect]
     Active Substance: AMLODIPINE BESYLATE
     Dosage: 5 MG
     Route: 048
     Dates: start: 20201217, end: 20201217
  2. QUETIAPINE [Suspect]
     Active Substance: QUETIAPINE
     Dosage: 50 MG
     Route: 048
     Dates: start: 20201217, end: 20201217

REACTIONS (4)
  - Suicide attempt [Unknown]
  - Somnolence [Unknown]
  - Depressed mood [Unknown]
  - Drug abuse [Unknown]
